FAERS Safety Report 19200688 (Version 2)
Quarter: 2021Q2

REPORT INFORMATION
  Report Type: Other
  Country: BD (occurrence: BD)
  Receive Date: 20210430
  Receipt Date: 20210518
  Transmission Date: 20210717
  Serious: Yes (Other)
  Sender: FDA-Public Use
  Company Number: BD-ROCHE-2818750

PATIENT
  Age: 35 Year
  Sex: Female

DRUGS (10)
  1. COTRIM DS [Concomitant]
  2. PANTONIX [Concomitant]
  3. MEGESTROL [Concomitant]
     Active Substance: MEGESTROL
  4. MABTHERA [Suspect]
     Active Substance: RITUXIMAB
     Indication: FOLLICULAR LYMPHOMA
     Route: 041
  5. GEMCITABINE. [Suspect]
     Active Substance: GEMCITABINE
     Indication: FOLLICULAR LYMPHOMA
     Route: 065
  6. URSOCOL [Concomitant]
  7. DEXAMETHASONE. [Suspect]
     Active Substance: DEXAMETHASONE
     Indication: FOLLICULAR LYMPHOMA
     Route: 065
  8. NYSTAT [Concomitant]
     Active Substance: NYSTATIN
  9. CISPLATIN. [Suspect]
     Active Substance: CISPLATIN
     Indication: FOLLICULAR LYMPHOMA
     Route: 065
  10. EMISTOP [Concomitant]
     Active Substance: ONDANSETRON HYDROCHLORIDE

REACTIONS (3)
  - Haemoglobin decreased [Recovered/Resolved]
  - White blood cell count decreased [Recovered/Resolved]
  - Full blood count decreased [Recovered/Resolved]

NARRATIVE: CASE EVENT DATE: 20210401
